FAERS Safety Report 25904851 (Version 2)
Quarter: 2025Q4

REPORT INFORMATION
  Report Type: Spontaneous
  Country: US (occurrence: US)
  Receive Date: 20251010
  Receipt Date: 20251020
  Transmission Date: 20260117
  Serious: No
  Sender: ELI LILLY AND COMPANY
  Company Number: US-ELI_LILLY_AND_COMPANY-US202510010539

PATIENT
  Age: 67 Year
  Sex: Female

DRUGS (2)
  1. AMYVID [Suspect]
     Active Substance: FLORBETAPIR F-18
     Indication: Cognitive disorder
     Dosage: UNK, UNKNOWN
     Route: 065
  2. AMYVID [Suspect]
     Active Substance: FLORBETAPIR F-18
     Indication: Aphasia

REACTIONS (2)
  - Feeling abnormal [Unknown]
  - Headache [Recovered/Resolved]

NARRATIVE: CASE EVENT DATE: 20251006
